FAERS Safety Report 22219784 (Version 1)
Quarter: 2023Q2

REPORT INFORMATION
  Report Type: Spontaneous
  Country: US (occurrence: None)
  Receive Date: 20230414
  Receipt Date: 20230414
  Transmission Date: 20230722
  Serious: Yes (Other)
  Sender: FDA-Public Use
  Company Number: None

PATIENT
  Age: 84 Year
  Sex: Female

DRUGS (5)
  1. PHOSPHOLINE IODIDE OPHTHALMIC [Suspect]
     Active Substance: ECHOTHIOPHATE IODIDE
     Indication: Glaucoma
     Dosage: OTHER QUANTITY : 0.125%;?FREQUENCY : TWICE A DAY;?
     Route: 047
     Dates: start: 20230224
  2. FOLIC ACID TAB [Concomitant]
  3. RHOPRESSA SOL [Concomitant]
  4. VYZULTA [Concomitant]
     Active Substance: LATANOPROSTENE BUNOD
  5. XALATAN SOL [Concomitant]

REACTIONS (5)
  - Eye pain [None]
  - Headache [None]
  - Photopsia [None]
  - Visual impairment [None]
  - Ocular hyperaemia [None]

NARRATIVE: CASE EVENT DATE: 20230301
